FAERS Safety Report 12673844 (Version 1)
Quarter: 2016Q3

REPORT INFORMATION
  Report Type: Spontaneous
  Country: FR (occurrence: FR)
  Receive Date: 20160822
  Receipt Date: 20160822
  Transmission Date: 20161109
  Serious: Yes (Hospitalization, Other)
  Sender: FDA-Public Use
  Company Number: FR-BRISTOL-MYERS SQUIBB COMPANY-BMS-2016-065448

PATIENT
  Age: 79 Year
  Sex: Female

DRUGS (1)
  1. COUMADINE [Suspect]
     Active Substance: WARFARIN SODIUM
     Indication: PRODUCT USED FOR UNKNOWN INDICATION
     Route: 048

REACTIONS (4)
  - Subdural haematoma [Unknown]
  - Haemorrhage intracranial [Unknown]
  - Fall [Unknown]
  - Surgery [Unknown]

NARRATIVE: CASE EVENT DATE: 20130610
